FAERS Safety Report 9824117 (Version 2)
Quarter: 2014Q1

REPORT INFORMATION
  Report Type: Spontaneous
  Country: US (occurrence: US)
  Receive Date: 20140116
  Receipt Date: 20140317
  Transmission Date: 20141002
  Serious: Yes (Hospitalization)
  Sender: FDA-Public Use
  Company Number: US-GLAXOSMITHKLINE-A0359037A

PATIENT
  Age: 63 Year
  Sex: Female

DRUGS (11)
  1. FLOVENT 220 [Suspect]
     Indication: DYSPNOEA
     Dosage: 2PUFF TWICE PER DAY
     Route: 065
     Dates: start: 200310
  2. FLOVENT 110 [Suspect]
     Indication: ASTHMA
     Dosage: 4PUFF TWICE PER DAY
     Dates: start: 20031010
  3. ADVAIR HFA [Suspect]
     Indication: ASTHMA
     Dosage: 1PUFF TWICE PER DAY
     Route: 055
     Dates: start: 200105, end: 200105
  4. SEREVENT [Suspect]
     Indication: PRODUCT USED FOR UNKNOWN INDICATION
     Dosage: 50MCG UNKNOWN
     Dates: start: 20111019
  5. DEPOMEDROL [Concomitant]
  6. COMBIVENT [Concomitant]
  7. AZMACORT [Concomitant]
  8. DURATUSS [Concomitant]
  9. DIFLUCAN [Concomitant]
  10. SPECIFIED HERBAL TREATMENT-NO REFERENCE [Concomitant]
  11. UNKNOWN MEDICATION [Concomitant]

REACTIONS (8)
  - Investigation [Unknown]
  - Fungal infection [Not Recovered/Not Resolved]
  - Malaise [Recovered/Resolved]
  - Upper respiratory tract infection [Unknown]
  - Drug ineffective [Unknown]
  - Cough [Not Recovered/Not Resolved]
  - Treatment noncompliance [Unknown]
  - Incorrect dose administered [Unknown]
